FAERS Safety Report 10262103 (Version 1)
Quarter: 2014Q2

REPORT INFORMATION
  Report Type: Spontaneous
  Country: US (occurrence: US)
  Receive Date: 20140626
  Receipt Date: 20140626
  Transmission Date: 20141212
  Serious: Yes (Hospitalization)
  Sender: FDA-Public Use
  Company Number: US-GLAXOSMITHKLINE-A1030291A

PATIENT
  Age: 52 Year
  Sex: Male
  Weight: 122.7 kg

DRUGS (1)
  1. AVANDIA [Suspect]
     Indication: TYPE 2 DIABETES MELLITUS
     Dosage: 8MG PER DAY
     Route: 048
     Dates: start: 200202

REACTIONS (4)
  - Cardiac failure congestive [Unknown]
  - Cerebrovascular accident [Unknown]
  - Coronary artery occlusion [Unknown]
  - Angina unstable [Unknown]
